FAERS Safety Report 23019804 (Version 1)
Quarter: 2023Q4

REPORT INFORMATION
  Report Type: Spontaneous
  Country: JP (occurrence: JP)
  Receive Date: 20231003
  Receipt Date: 20231003
  Transmission Date: 20240110
  Serious: Yes (Other)
  Sender: FDA-Public Use
  Company Number: JP-OTSUKA-2023_025371

PATIENT
  Age: 48 Year
  Sex: Female

DRUGS (5)
  1. CARTEOLOL HYDROCHLORIDE [Suspect]
     Active Substance: CARTEOLOL HYDROCHLORIDE
     Indication: Product used for unknown indication
     Dosage: 1X, FOR BOTH EYES
     Route: 047
  2. ALPHAGAN P [Suspect]
     Active Substance: BRIMONIDINE TARTRATE
     Indication: Normal tension glaucoma
     Dosage: 1 DROP/TIME, TWICE/DAY, BOTH EYES
     Route: 047
     Dates: start: 20130810, end: 20230408
  3. PATANOL [Concomitant]
     Active Substance: OLOPATADINE HYDROCHLORIDE
     Indication: Product used for unknown indication
     Dosage: 4X, BOTH EYES
     Route: 047
  4. RIPASUDIL HYDROCHLORIDE DIHYDRATE [Concomitant]
     Active Substance: RIPASUDIL HYDROCHLORIDE DIHYDRATE
     Indication: Normal tension glaucoma
     Dosage: 1 DROP/TIME, TWICE/DAY, BOTH EYES
     Route: 047
     Dates: start: 20190610
  5. TAFLUPROST\TIMOLOL [Concomitant]
     Active Substance: TAFLUPROST\TIMOLOL
     Indication: Normal tension glaucoma
     Dosage: 1 DROP/TIME, ONCE/DAY, BOTH EYES
     Route: 047
     Dates: start: 20180501

REACTIONS (1)
  - Corneal opacity [Unknown]

NARRATIVE: CASE EVENT DATE: 20180120
